FAERS Safety Report 23817058 (Version 4)
Quarter: 2024Q2

REPORT INFORMATION
  Report Type: Spontaneous
  Country: JP (occurrence: JP)
  Receive Date: 20240504
  Receipt Date: 20240528
  Transmission Date: 20240716
  Serious: Yes (Other)
  Sender: FDA-Public Use
  Company Number: JP-CELLTRION INC.-2024JP009508

PATIENT

DRUGS (7)
  1. INFLIXIMAB [Suspect]
     Active Substance: INFLIXIMAB
     Indication: Inflammatory bowel disease
     Dosage: 5 MG/KG
     Route: 041
     Dates: start: 20240127
  2. INFLIXIMAB [Suspect]
     Active Substance: INFLIXIMAB
     Dosage: (5MG/KG) AS WEEK 2
     Route: 041
     Dates: start: 20240213
  3. INFLIXIMAB [Suspect]
     Active Substance: INFLIXIMAB
     Dosage: 5 MG/KG UNTIL WEEK 6
     Route: 041
     Dates: start: 20240309
  4. INFLIXIMAB [Suspect]
     Active Substance: INFLIXIMAB
     Dosage: 10 MG/KG AS WEEK 14
     Route: 041
     Dates: start: 20240427
  5. PENTASA [Concomitant]
     Active Substance: MESALAMINE
     Dosage: 250 MG
     Dates: start: 20240127
  6. BIO-THREE [Concomitant]
     Active Substance: HERBALS
     Dosage: UNK
     Dates: start: 20240127
  7. BUDESONIDE [Concomitant]
     Active Substance: BUDESONIDE
     Dosage: 2 MG
     Dates: start: 20240127

REACTIONS (4)
  - Haematochezia [Not Recovered/Not Resolved]
  - Faeces soft [Not Recovered/Not Resolved]
  - Therapeutic response decreased [Unknown]
  - Prescribed overdose [Unknown]

NARRATIVE: CASE EVENT DATE: 20240309
